FAERS Safety Report 20710014 (Version 1)
Quarter: 2022Q2

REPORT INFORMATION
  Report Type: Spontaneous
  Country: CN (occurrence: None)
  Receive Date: 20220414
  Receipt Date: 20220414
  Transmission Date: 20220721
  Serious: Yes (Hospitalization)
  Sender: FDA-Public Use
  Company Number: 2022A145830

PATIENT
  Age: 17763 Day
  Sex: Male
  Weight: 70 kg

DRUGS (1)
  1. TAGRISSO [Suspect]
     Active Substance: OSIMERTINIB
     Indication: Neoplasm
     Route: 048
     Dates: start: 20210623, end: 20220326

REACTIONS (4)
  - Haemangioma [Recovering/Resolving]
  - Skin ulcer [Unknown]
  - Haemorrhage [Recovering/Resolving]
  - Rash [Recovering/Resolving]

NARRATIVE: CASE EVENT DATE: 20220326
